FAERS Safety Report 12871922 (Version 1)
Quarter: 2016Q4

REPORT INFORMATION
  Report Type: Report from Study
  Country: None (occurrence: VE)
  Receive Date: 20161021
  Receipt Date: 20161021
  Transmission Date: 20170207
  Serious: Yes (Death, Other)
  Sender: FDA-Public Use
  Company Number: VE-ABBVIE-16P-178-1758422-00

PATIENT
  Age: 63 Year
  Sex: Male

DRUGS (1)
  1. PARICALCITOL. [Suspect]
     Active Substance: PARICALCITOL
     Indication: NEPHROPATHY
     Route: 042
     Dates: start: 20160120, end: 20160808

REACTIONS (6)
  - Congestive cardiomyopathy [Fatal]
  - Hypertensive crisis [Unknown]
  - Aortic calcification [Fatal]
  - Systolic hypertension [Fatal]
  - Device related sepsis [Fatal]
  - Atrial fibrillation [Fatal]

NARRATIVE: CASE EVENT DATE: 201607
